FAERS Safety Report 5267161-6 (Version None)
Quarter: 2007Q1

REPORT INFORMATION
  Report Type: 
  Country: None (occurrence: None)
  Receive Date: 20070312
  Receipt Date: 20070305
  Transmission Date: 20070707
  Serious: Yes (Hospitalization)
  Sender: FDA-Public Use
  Company Number: 163-20785-07030277

PATIENT
  Age: 43 Year
  Sex: Female

DRUGS (1)
  1. THALOMID [Suspect]
     Indication: MULTIPLE MYELOMA
     Dosage: 200 MG, 4 IN 1 D, ORAL
     Route: 048
     Dates: start: 20061201

REACTIONS (4)
  - DISEASE RECURRENCE [None]
  - IMPAIRED GASTRIC EMPTYING [None]
  - POST PROCEDURAL INFECTION [None]
  - STAPHYLOCOCCAL ABSCESS [None]
